FAERS Safety Report 5513445-3 (Version None)
Quarter: 2007Q4

REPORT INFORMATION
  Report Type: 
  Country: None (occurrence: None)
  Receive Date: 20071112
  Receipt Date: 20071101
  Transmission Date: 20080405
  Serious: Yes (Other)
  Sender: FDA-Public Use
  Company Number: US-PFIZER INC-2007092676

PATIENT

DRUGS (1)
  1. CADUET [Suspect]

REACTIONS (1)
  - RENAL IMPAIRMENT [None]
